FAERS Safety Report 14404638 (Version 3)
Quarter: 2019Q1

REPORT INFORMATION
  Report Type: Spontaneous
  Country: JP (occurrence: JP)
  Receive Date: 20180117
  Receipt Date: 20190218
  Transmission Date: 20190417
  Serious: Yes (Hospitalization, Other)
  Sender: FDA-Public Use
  Company Number: PHJP2017JP009910

PATIENT
  Age: 25 Year
  Sex: Female

DRUGS (4)
  1. VALPROATE SODIUM. [Suspect]
     Active Substance: VALPROATE SODIUM
     Indication: SCHIZOPHRENIA
     Dosage: 1200 MG, UNK
     Route: 065
     Dates: end: 201611
  2. CLOZARIL [Suspect]
     Active Substance: CLOZAPINE
     Dosage: 200 MG, QD
     Route: 048
     Dates: start: 201611
  3. CLOZARIL [Suspect]
     Active Substance: CLOZAPINE
     Indication: SCHIZOPHRENIA
     Dosage: 400 MG, QD
     Route: 048
  4. E KEPPRA [Suspect]
     Active Substance: LEVETIRACETAM
     Indication: SEIZURE
     Dosage: 2000 MG, UNK
     Route: 065
     Dates: start: 201611

REACTIONS (13)
  - Anti-neutrophil cytoplasmic antibody positive vasculitis [Unknown]
  - Seizure [Recovered/Resolved]
  - Somnolence [Recovered/Resolved]
  - Fall [Recovered/Resolved]
  - Lupus-like syndrome [Unknown]
  - Double stranded DNA antibody positive [Unknown]
  - Sedation [Recovered/Resolved]
  - Antineutrophil cytoplasmic antibody positive [Unknown]
  - Drug level increased [Recovering/Resolving]
  - Pyrexia [Recovered/Resolved]
  - Constipation [Recovered/Resolved]
  - Antinuclear antibody positive [Unknown]
  - Dysuria [Recovered/Resolved]

NARRATIVE: CASE EVENT DATE: 201611
